FAERS Safety Report 14710899 (Version 2)
Quarter: 2018Q2

REPORT INFORMATION
  Report Type: Report from Study
  Country: US (occurrence: US)
  Receive Date: 20180403
  Receipt Date: 20180609
  Transmission Date: 20180711
  Serious: Yes (Death, Hospitalization, Other)
  Sender: FDA-Public Use
  Company Number: US-AMGEN-USACT2018038545

PATIENT
  Age: 9 Year
  Sex: Male
  Weight: 35.9 kg

DRUGS (16)
  1. BLINATUMOMAB [Suspect]
     Active Substance: BLINATUMOMAB
     Indication: PRECURSOR B-LYMPHOBLASTIC LYMPHOMA RECURRENT
     Dosage: 15 MCG/M2, CONTINUING
     Route: 042
     Dates: start: 20170928, end: 2017
  2. CYTARABINE. [Suspect]
     Active Substance: CYTARABINE
     Indication: B PRECURSOR TYPE ACUTE LEUKAEMIA
     Dosage: 16-30 MG
     Route: 037
     Dates: start: 201709, end: 201711
  3. CETIRIZINE [Concomitant]
     Active Substance: CETIRIZINE HYDROCHLORIDE
     Dosage: UNK
  4. HYDROCORTISONE. [Suspect]
     Active Substance: HYDROCORTISONE
     Dosage: 8-15 MG
     Route: 037
     Dates: start: 201711, end: 201712
  5. METHOTREXATE. [Suspect]
     Active Substance: METHOTREXATE
     Indication: B PRECURSOR TYPE ACUTE LEUKAEMIA
     Dosage: 8-15 MG
     Route: 037
     Dates: start: 201709, end: 201711
  6. GRANISETRON [Concomitant]
     Active Substance: GRANISETRON
     Dosage: UNK
  7. BLINATUMOMAB [Suspect]
     Active Substance: BLINATUMOMAB
     Dosage: 15 MCG/M2, CONTINUING
     Route: 042
     Dates: start: 20171107, end: 20171205
  8. CYTARABINE. [Suspect]
     Active Substance: CYTARABINE
     Dosage: 16-30 MG
     Route: 037
     Dates: start: 201711, end: 201712
  9. DEXAMETHASONE. [Suspect]
     Active Substance: DEXAMETHASONE
     Indication: B PRECURSOR TYPE ACUTE LEUKAEMIA
     Dosage: UNK
     Route: 065
     Dates: start: 201709, end: 201711
  10. TACROLIMUS. [Concomitant]
     Active Substance: TACROLIMUS
     Dosage: UNK
  11. FUROSEMIDE. [Concomitant]
     Active Substance: FUROSEMIDE
     Dosage: UNK
  12. LORAZEPAM. [Concomitant]
     Active Substance: LORAZEPAM
     Dosage: UNK
  13. PROMETHAZINE [Concomitant]
     Active Substance: PROMETHAZINE\PROMETHAZINE HYDROCHLORIDE
     Dosage: UNK
  14. HYDROCORTISONE. [Suspect]
     Active Substance: HYDROCORTISONE
     Indication: B PRECURSOR TYPE ACUTE LEUKAEMIA
     Dosage: 8-15 MG
     Route: 037
     Dates: start: 201709, end: 201711
  15. METHOTREXATE. [Suspect]
     Active Substance: METHOTREXATE
     Dosage: 8-15 MG
     Route: 037
     Dates: start: 201711, end: 201712
  16. TRETINOIN. [Concomitant]
     Active Substance: TRETINOIN
     Dosage: UNK

REACTIONS (1)
  - Acute respiratory distress syndrome [Fatal]

NARRATIVE: CASE EVENT DATE: 20180207
